FAERS Safety Report 23588833 (Version 1)
Quarter: 2024Q1

REPORT INFORMATION
  Report Type: Spontaneous
  Country: US (occurrence: US)
  Receive Date: 20240303
  Receipt Date: 20240303
  Transmission Date: 20240410
  Serious: Yes (Hospitalization)
  Sender: FDA-Public Use
  Company Number: US-AUROBINDO-AUR-APL-2024-009284

PATIENT
  Age: 60 Year
  Sex: Female

DRUGS (1)
  1. RISEDRONATE SODIUM [Suspect]
     Active Substance: RISEDRONATE SODIUM
     Indication: Osteoporosis
     Dosage: UNK (01 TABLET PER MONTH)
     Route: 065
     Dates: start: 20230801, end: 20240201

REACTIONS (2)
  - Musculoskeletal pain [Not Recovered/Not Resolved]
  - Hospitalisation [Unknown]
